FAERS Safety Report 8127510-8 (Version None)
Quarter: 2012Q1

REPORT INFORMATION
  Report Type: 
  Country: None (occurrence: None)
  Receive Date: 20120210
  Receipt Date: 20120201
  Transmission Date: 20120608
  Serious: Yes (Death, Life-Threatening)
  Sender: FDA-Public Use
  Company Number: SE-AMGEN-US309612

PATIENT
  Age: 67 Year
  Sex: Female

DRUGS (4)
  1. SULFASALAZINE [Concomitant]
  2. ETANERCEPT [Suspect]
     Indication: RHEUMATOID ARTHRITIS
     Dosage: 50 MG, QWK
     Route: 058
     Dates: start: 20060831
  3. TRAMADOL HCL [Concomitant]
     Dosage: 100 MG, TID
     Route: 048
  4. ALVEDON [Concomitant]
     Dosage: UNK
     Route: 048

REACTIONS (1)
  - PULMONARY EMBOLISM [None]
